FAERS Safety Report 8976507 (Version 1)
Quarter: 2012Q4

REPORT INFORMATION
  Report Type: Report from Study
  Country: BR (occurrence: BR)
  Receive Date: 20121220
  Receipt Date: 20121220
  Transmission Date: 20130627
  Serious: Yes (Hospitalization)
  Sender: FDA-Public Use
  Company Number: BR-ROCHE-1103903

PATIENT
  Sex: Female
  Weight: 69 kg

DRUGS (5)
  1. TOCILIZUMAB [Suspect]
     Indication: RHEUMATOID ARTHRITIS
     Route: 042
     Dates: start: 20120301
  2. TOCILIZUMAB [Suspect]
     Route: 042
     Dates: start: 20120401
  3. TOCILIZUMAB [Suspect]
     Route: 042
     Dates: start: 20120501
  4. TOCILIZUMAB [Suspect]
     Route: 042
     Dates: start: 20120601
  5. TOCILIZUMAB [Suspect]
     Route: 042
     Dates: start: 20120701

REACTIONS (3)
  - Cardiac failure [Unknown]
  - Hypersensitivity [Not Recovered/Not Resolved]
  - Pain [Unknown]
